FAERS Safety Report 6244348-7 (Version None)
Quarter: 2009Q2

REPORT INFORMATION
  Report Type: 
  Country: None (occurrence: None)
  Receive Date: 20090625
  Receipt Date: 20090615
  Transmission Date: 20091009
  Serious: Yes (Other)
  Sender: FDA-Public Use
  Company Number: US-ROCHE-639313

PATIENT
  Age: 29 Year
  Sex: Male

DRUGS (5)
  1. MYCOPHENOLATE MOFETIL [Suspect]
     Route: 065
  2. SIROLIMUS [Suspect]
     Route: 065
  3. CYCLOSPORINE [Suspect]
     Route: 065
  4. TACROLIMUS [Suspect]
     Route: 065
  5. THYMOGLOBULIN [Suspect]
     Dosage: DRUG REPORTED AS: THYMOGLOBULIN.
     Route: 065

REACTIONS (4)
  - ARTERIAL DISORDER [None]
  - CHRONIC ALLOGRAFT NEPHROPATHY [None]
  - FIBROSIS [None]
  - TRANSPLANT REJECTION [None]
